FAERS Safety Report 14566245 (Version 1)
Quarter: 2018Q1

REPORT INFORMATION
  Report Type: Spontaneous
  Country: US (occurrence: US)
  Receive Date: 20180223
  Receipt Date: 20180223
  Transmission Date: 20180509
  Serious: No
  Sender: FDA-Public Use
  Company Number: US-PFIZER INC-2018076589

PATIENT
  Age: 37 Year
  Sex: Female
  Weight: 90.26 kg

DRUGS (1)
  1. REVATIO [Suspect]
     Active Substance: SILDENAFIL CITRATE
     Indication: PAIN IN EXTREMITY
     Dosage: 20 MG, 3X/DAY
     Route: 048

REACTIONS (2)
  - Product use in unapproved indication [Unknown]
  - Frostbite [Unknown]

NARRATIVE: CASE EVENT DATE: 201712
